FAERS Safety Report 19268294 (Version 1)
Quarter: 2021Q2

REPORT INFORMATION
  Report Type: Spontaneous
  Country: US (occurrence: US)
  Receive Date: 20210517
  Receipt Date: 20210517
  Transmission Date: 20210717
  Serious: No
  Sender: FDA-Public Use
  Company Number: None

PATIENT
  Age: 77 Year
  Sex: Female

DRUGS (1)
  1. ONDANSETRON [Suspect]
     Active Substance: ONDANSETRON
     Indication: NAUSEA
     Dosage: ?          QUANTITY:1 TABLET(S);?
     Route: 048
     Dates: start: 20210512, end: 20210514

REACTIONS (10)
  - Therapy interrupted [None]
  - Dysuria [None]
  - Hyperhidrosis [None]
  - Dry mouth [None]
  - Illness [None]
  - Tremor [None]
  - Nephrolithiasis [None]
  - Nausea [None]
  - Dizziness [None]
  - Vomiting [None]

NARRATIVE: CASE EVENT DATE: 20210512
